FAERS Safety Report 18191237 (Version 1)
Quarter: 2020Q3

REPORT INFORMATION
  Report Type: Spontaneous
  Country: DE (occurrence: DE)
  Receive Date: 20200825
  Receipt Date: 20200825
  Transmission Date: 20201103
  Serious: Yes (Hospitalization)
  Sender: FDA-Public Use
  Company Number: DE-TEVA-2020-DE-1817112

PATIENT
  Age: 80 Year
  Sex: Male

DRUGS (10)
  1. ACETYLSALICYLSAURE [Suspect]
     Active Substance: ASPIRIN
     Dosage: 100 MILLIGRAM DAILY; 1?0?0?0
  2. METHOTREXAT [Suspect]
     Active Substance: METHOTREXATE
     Dosage: 10 MG, 1X FRIDAY
  3. TORASEMID [Concomitant]
     Active Substance: TORSEMIDE
     Dosage: 10 MILLIGRAM DAILY; 1?0?0?0
  4. HYDROCHLOROTHIAZID/RAMIPRIL [Concomitant]
     Active Substance: HYDROCHLOROTHIAZIDE\RAMIPRIL
     Dosage: 1 DOSAGE FORMS DAILY; 25|5 MG, 1?0?0?0
  5. METAMIZOL [Concomitant]
     Active Substance: METAMIZOLE SODIUM
     Dosage: 500 MG, AS NEEDED
  6. PREDNISOLON [Suspect]
     Active Substance: PREDNISOLONE
     Dosage: 1 MILLIGRAM DAILY; 1?0?0?0
  7. CALCIGEN D 600MG/400I.E. [Concomitant]
     Dosage: 1 DOSAGE FORMS DAILY; 600 | 400 MG / IU, 1?0?0?0
  8. ZOPICLON [Concomitant]
     Active Substance: ZOPICLONE
     Dosage: 7.5 MILLIGRAM DAILY; 0?0?1?0
  9. FOLSAURE [Concomitant]
     Active Substance: FOLIC ACID
     Dosage: 1X ON SATURDAYS, 1 DOSAGE FORM
  10. PANTOPRAZOL [Concomitant]
     Active Substance: PANTOPRAZOLE SODIUM
     Dosage: 40 MILLIGRAM DAILY; 1?0?0?0

REACTIONS (1)
  - Haematochezia [Recovering/Resolving]

NARRATIVE: CASE EVENT DATE: 20200525
